FAERS Safety Report 5709938-6 (Version None)
Quarter: 2008Q2

REPORT INFORMATION
  Report Type: 
  Country: None (occurrence: None)
  Receive Date: 20080418
  Receipt Date: 20080408
  Transmission Date: 20081010
  Serious: Yes (Congenital Anomaly)
  Sender: FDA-Public Use
  Company Number: FR-ELI_LILLY_AND_COMPANY-FR200804001696

PATIENT

DRUGS (4)
  1. PROZAC [Suspect]
     Dosage: 20 MG, DAILY (1/D)
     Route: 064
     Dates: end: 20060928
  2. DEPAKENE [Concomitant]
     Indication: EPILEPSY
     Dosage: 500 MG, 2/D
     Route: 064
     Dates: end: 20060101
  3. DEPAKENE [Concomitant]
     Dosage: 500 MG, 4/D
     Route: 064
     Dates: start: 20060101, end: 20060928
  4. FOLIC ACID [Concomitant]
     Indication: SUPPLEMENTATION THERAPY
     Route: 064

REACTIONS (7)
  - BRADYCARDIA FOETAL [None]
  - CEREBRAL VENTRICLE DILATATION [None]
  - DRUG EXPOSURE DURING PREGNANCY [None]
  - DYSMORPHISM [None]
  - NEONATAL RESPIRATORY DISTRESS SYNDROME [None]
  - OLIGOHYDRAMNIOS [None]
  - PSYCHOMOTOR RETARDATION [None]
